FAERS Safety Report 8153397-3 (Version None)
Quarter: 2012Q1

REPORT INFORMATION
  Report Type: 
  Country: None (occurrence: None)
  Receive Date: 20120221
  Receipt Date: 20120214
  Transmission Date: 20120608
  Serious: Yes (Death, Hospitalization)
  Sender: FDA-Public Use
  Company Number: FR-ROCHE-1040201

PATIENT
  Sex: Female

DRUGS (2)
  1. AVASTIN [Suspect]
     Indication: GLIOBLASTOMA
     Route: 042
     Dates: start: 20111214, end: 20111214
  2. TEMODAL [Suspect]
     Indication: GLIOBLASTOMA
     Dates: start: 20111214, end: 20111218

REACTIONS (1)
  - PANCYTOPENIA [None]
